FAERS Safety Report 11882575 (Version 1)
Quarter: 2015Q4

REPORT INFORMATION
  Report Type: Spontaneous
  Country: CH (occurrence: CH)
  Receive Date: 20151231
  Receipt Date: 20151231
  Transmission Date: 20160305
  Serious: Yes (Hospitalization)
  Sender: FDA-Public Use
  Company Number: CH-JNJFOC-20151225611

PATIENT
  Age: 17 Year
  Sex: Female
  Weight: 44 kg

DRUGS (5)
  1. RISPERDAL [Suspect]
     Active Substance: RISPERIDONE
     Indication: PSYCHIATRIC DECOMPENSATION
     Route: 065
     Dates: start: 20151126, end: 20151129
  2. IRFEN [Concomitant]
     Active Substance: IBUPROFEN
     Route: 065
  3. RISPERDAL [Suspect]
     Active Substance: RISPERIDONE
     Indication: PSYCHIATRIC DECOMPENSATION
     Route: 065
     Dates: start: 20151130, end: 20151205
  4. DAFALGAN [Concomitant]
     Active Substance: ACETAMINOPHEN
     Route: 065
  5. LORAZEPAM. [Concomitant]
     Active Substance: LORAZEPAM
     Route: 065

REACTIONS (4)
  - Hyperprolactinaemia [Recovering/Resolving]
  - Mastitis [Recovered/Resolved]
  - Galactorrhoea [Recovered/Resolved]
  - Breast pain [Recovered/Resolved]

NARRATIVE: CASE EVENT DATE: 20151205
